FAERS Safety Report 16371223 (Version 1)
Quarter: 2019Q2

REPORT INFORMATION
  Report Type: Spontaneous
  Country: US (occurrence: US)
  Receive Date: 20190530
  Receipt Date: 20190530
  Transmission Date: 20190711
  Serious: Yes (Life-Threatening, Hospitalization, Other)
  Sender: FDA-Public Use
  Company Number: US-PFIZER INC-2019229266

PATIENT
  Age: 37 Year
  Sex: Male
  Weight: 99.79 kg

DRUGS (1)
  1. VENLAFAXINE HCL [Suspect]
     Active Substance: VENLAFAXINE HYDROCHLORIDE
     Indication: MAJOR DEPRESSION
     Dosage: 250 MG, 1X/DAY
     Route: 048
     Dates: start: 201804, end: 2018

REACTIONS (5)
  - Headache [Unknown]
  - Dyspnoea [Unknown]
  - Chest pain [Unknown]
  - Withdrawal syndrome [Recovering/Resolving]
  - Suicidal ideation [Unknown]

NARRATIVE: CASE EVENT DATE: 201904
